FAERS Safety Report 11806924 (Version 1)
Quarter: 2015Q4

REPORT INFORMATION
  Report Type: Spontaneous
  Country: US (occurrence: US)
  Receive Date: 20151207
  Receipt Date: 20151207
  Transmission Date: 20160305
  Serious: No
  Sender: FDA-Public Use
  Company Number: US-ENDO PHARMACEUTICALS INC.-2015-002112

PATIENT
  Age: 71 Year
  Sex: Male
  Weight: 96.7 kg

DRUGS (2)
  1. TESTIM [Suspect]
     Active Substance: TESTOSTERONE
     Indication: BLOOD TESTOSTERONE DECREASED
     Dosage: ONE TUBE SPLIT ON BOTH SHOULDERS AND APPLIED EACH DAY
     Route: 062
     Dates: start: 201410, end: 20150616
  2. TESTIM [Suspect]
     Active Substance: TESTOSTERONE
     Dosage: ONE TUBE SPLIT ON BOTH SHOULDERS AND APPLIED EACH DAY
     Route: 062
     Dates: start: 20150624

REACTIONS (1)
  - Prostatic specific antigen increased [Recovered/Resolved]

NARRATIVE: CASE EVENT DATE: 20150106
